FAERS Safety Report 25846047 (Version 1)
Quarter: 2025Q3

REPORT INFORMATION
  Report Type: Spontaneous
  Country: US (occurrence: None)
  Receive Date: 20250924
  Receipt Date: 20250924
  Transmission Date: 20251020
  Serious: No
  Sender: FDA-CTU
  Company Number: None

PATIENT
  Age: 73 Year
  Sex: Male

DRUGS (1)
  1. LENALIDOMIDE [Suspect]
     Active Substance: LENALIDOMIDE
     Indication: Plasma cell myeloma
     Dosage: 20MG QD ORAL
     Route: 048
     Dates: start: 20250414

REACTIONS (6)
  - Pneumonia [None]
  - Febrile neutropenia [None]
  - Respiratory tract infection [None]
  - Pseudomonas test positive [None]
  - Klebsiella test positive [None]
  - Pancytopenia [None]

NARRATIVE: CASE EVENT DATE: 20250911
